FAERS Safety Report 4301980-5 (Version None)
Quarter: 2004Q1

REPORT INFORMATION
  Report Type: 
  Country: None (occurrence: None)
  Receive Date: 20040220
  Receipt Date: 20040213
  Transmission Date: 20041129
  Serious: Yes (Hospitalization)
  Sender: FDA-Public Use
  Company Number: DK-JNJFOC-20031004675

PATIENT
  Age: 46 Year
  Sex: Male

DRUGS (1)
  1. REMICADE [Suspect]
     Indication: ANKYLOSING SPONDYLITIS
     Dosage: 3 MG/KG 1 IN 8 WEEK, INTRAVENOUS
     Route: 042
     Dates: start: 20030603, end: 20030909

REACTIONS (6)
  - GASTROINTESTINAL DISORDER [None]
  - HAEMOGLOBIN DECREASED [None]
  - NAUSEA [None]
  - RASH PRURITIC [None]
  - SCAB [None]
  - TUBERCULOSIS [None]
